FAERS Safety Report 14175804 (Version 2)
Quarter: 2017Q4

REPORT INFORMATION
  Report Type: Spontaneous
  Country: US (occurrence: US)
  Receive Date: 20171109
  Receipt Date: 20171120
  Transmission Date: 20180321
  Serious: No
  Sender: FDA-Public Use
  Company Number: US-BAYER-2017-216103

PATIENT
  Age: 75 Year
  Sex: Male
  Weight: 240 kg

DRUGS (1)
  1. MIRALAX [Suspect]
     Active Substance: POLYETHYLENE GLYCOL 3350
     Indication: GASTROINTESTINAL DISORDER
     Dosage: 1 DF, QD
     Route: 048
     Dates: start: 2016

REACTIONS (5)
  - Product taste abnormal [None]
  - Poor quality drug administered [None]
  - Incorrect drug administration duration [Unknown]
  - Product odour abnormal [None]
  - Product use issue [Unknown]

NARRATIVE: CASE EVENT DATE: 2016
